FAERS Safety Report 8353760-1 (Version None)
Quarter: 2012Q2

REPORT INFORMATION
  Report Type: 
  Country: None (occurrence: None)
  Receive Date: 20120511
  Receipt Date: 20111024
  Transmission Date: 20120825
  Serious: No
  Sender: FDA-Public Use
  Company Number: US-GLAXOSMITHKLINE-A0950504A

PATIENT
  Age: 41 Year
  Sex: Female
  Weight: 79.5 kg

DRUGS (6)
  1. EFFEXOR [Concomitant]
  2. SYNTHROID [Concomitant]
  3. HERCEPTIN [Concomitant]
  4. TYKERB [Suspect]
     Indication: PRODUCT USED FOR UNKNOWN INDICATION
     Dosage: 1000MG PER DAY
     Route: 048
  5. CALCIUM [Concomitant]
  6. VITAMIN D [Concomitant]

REACTIONS (1)
  - RASH ERYTHEMATOUS [None]
